FAERS Safety Report 4277480-8 (Version None)
Quarter: 2004Q1

REPORT INFORMATION
  Report Type: 
  Country: None (occurrence: None)
  Receive Date: 20040122
  Receipt Date: 20030407
  Transmission Date: 20041129
  Serious: Yes (Disabling)
  Sender: FDA-Public Use
  Company Number: WAES 0304USA00740

PATIENT
  Age: 50 Year
  Sex: Female
  Weight: 89 kg

DRUGS (6)
  1. ATENOLOL [Concomitant]
  2. FEOSOL [Concomitant]
  3. IBUPROFEN [Concomitant]
  4. PREVACID [Concomitant]
  5. RELAFEN [Concomitant]
  6. VIOXX [Suspect]
     Indication: INFLAMMATION
     Route: 048
     Dates: start: 20000501, end: 20020101

REACTIONS (16)
  - ABDOMINAL PAIN UPPER [None]
  - ANAEMIA [None]
  - ARTHRITIS [None]
  - BACK PAIN [None]
  - DIZZINESS [None]
  - DYSPEPSIA [None]
  - FATIGUE [None]
  - GASTROOESOPHAGEAL REFLUX DISEASE [None]
  - HIATUS HERNIA [None]
  - HYPERSENSITIVITY [None]
  - HYPERTENSION [None]
  - INFLAMMATION [None]
  - JOINT INJURY [None]
  - LIGAMENT INJURY [None]
  - OEDEMA PERIPHERAL [None]
  - PEPTIC ULCER HAEMORRHAGE [None]
